FAERS Safety Report 23456220 (Version 6)
Quarter: 2024Q2

REPORT INFORMATION
  Report Type: Spontaneous
  Country: DE (occurrence: DE)
  Receive Date: 20240130
  Receipt Date: 20240528
  Transmission Date: 20240715
  Serious: Yes (Other)
  Sender: FDA-Public Use
  Company Number: DE-LUNDBECK-DKLU3070697

PATIENT

DRUGS (29)
  1. PROPRANOLOL [Interacting]
     Active Substance: PROPRANOLOL HYDROCHLORIDE
     Indication: Tremor
     Dosage: UNK,DOSE AND FREQUENCY UNKNOWN
     Route: 065
  2. PROPRANOLOL [Interacting]
     Active Substance: PROPRANOLOL HYDROCHLORIDE
     Indication: Off label use
  3. SILDENAFIL [Interacting]
     Active Substance: SILDENAFIL
     Indication: Product used for unknown indication
     Dosage: UNK
     Route: 065
  4. NEBIVOLOL [Interacting]
     Active Substance: NEBIVOLOL
     Indication: Hypertension
     Dosage: 2.5MG MORNING AND NIGHT
     Route: 065
  5. CLOZAPINE [Interacting]
     Active Substance: CLOZAPINE
     Indication: Product used for unknown indication
     Dosage: UNK
     Route: 065
  6. RAMIPRIL [Interacting]
     Active Substance: RAMIPRIL
     Indication: Hypertension
     Dosage: UNK
     Route: 065
  7. MELATONIN [Interacting]
     Active Substance: MELATONIN
     Indication: Product used for unknown indication
     Dosage: UNK
     Route: 065
  8. RABEPRAZOLE [Interacting]
     Active Substance: RABEPRAZOLE
     Indication: Gastric pH increased
     Dosage: 20 MG, MORNING
     Route: 048
  9. RABEPRAZOLE [Interacting]
     Active Substance: RABEPRAZOLE
     Indication: Gastric pH increased
  10. CHLORPROTHIXENE [Interacting]
     Active Substance: CHLORPROTHIXENE
     Indication: Insomnia
     Dosage: 100MG AT BEDTIME FOR SLEEP
     Route: 065
  11. CHLORPROTHIXENE [Interacting]
     Active Substance: CHLORPROTHIXENE
     Indication: Insomnia
  12. ZYPREXA [Interacting]
     Active Substance: OLANZAPINE
     Indication: Product used for unknown indication
     Dosage: UNK
     Route: 065
  13. SEROQUEL [Interacting]
     Active Substance: QUETIAPINE FUMARATE
     Indication: Insomnia
     Dosage: 25-50 MG IF NECESSARY TO CALM DOWN
     Route: 065
  14. SEROQUEL [Interacting]
     Active Substance: QUETIAPINE FUMARATE
     Indication: Sedation
     Dosage: 100 MG, DAILY AT BEDTIME FOR SLEEP
     Route: 065
  15. PROMETHAZINE HYDROCHLORIDE [Interacting]
     Active Substance: PROMETHAZINE HYDROCHLORIDE
     Indication: Product used for unknown indication
     Dosage: 25 MG
     Route: 065
  16. PROMETHAZINE HYDROCHLORIDE [Interacting]
     Active Substance: PROMETHAZINE HYDROCHLORIDE
     Dosage: 37.5 MG
     Route: 065
  17. FLUPENTIXOL [Interacting]
     Active Substance: FLUPENTIXOL
     Indication: Psychotic disorder
     Dosage: MORNING: 5MG? EVENING: 6 MG? NIGHT: 2MG
     Route: 065
  18. CARIPRAZINE [Interacting]
     Active Substance: CARIPRAZINE
     Indication: Product used for unknown indication
     Dosage: UNK
     Route: 065
  19. TAVOR (LORAZEPAM) [Interacting]
     Active Substance: LORAZEPAM
     Indication: Sedation
     Dosage: 1MG IF NECESSARY FOR SEDATION/ANXIETY
     Route: 065
  20. TAVOR (LORAZEPAM) [Interacting]
     Active Substance: LORAZEPAM
     Indication: Anxiety
  21. ZELDOX [Interacting]
     Active Substance: ZIPRASIDONE
     Indication: Product used for unknown indication
     Dosage: UNK
     Route: 065
  22. BROMAZEPAM [Interacting]
     Active Substance: BROMAZEPAM
     Indication: Anxiety
     Dosage: 3 MG IF NECESSARY FOR SEDATION/ANXIETY
     Route: 065
  23. BROMAZEPAM [Interacting]
     Active Substance: BROMAZEPAM
     Indication: Sedation
  24. ABILIFY [Interacting]
     Active Substance: ARIPIPRAZOLE
     Indication: Product used for unknown indication
     Dosage: UNK
     Route: 065
  25. NAPROXEN [Interacting]
     Active Substance: NAPROXEN
     Indication: Arthralgia
     Dosage: 500 MG IF NECESSARY FOR KNEE PAIN
     Route: 065
  26. NAPROXEN [Interacting]
     Active Substance: NAPROXEN
     Indication: Anxiety
  27. RISPERDAL [Interacting]
     Active Substance: RISPERIDONE
     Indication: Psychotic disorder
     Dosage: MORNING 4MG, NIGHT 5MG
     Route: 065
  28. RISPERDAL [Interacting]
     Active Substance: RISPERIDONE
     Indication: Sedation
     Dosage: 2 MG
     Route: 065
  29. CANDESARTAN [Interacting]
     Active Substance: CANDESARTAN
     Indication: Hypertension
     Dosage: MORNING 8MG, AFTERNOON 4MG
     Route: 065

REACTIONS (14)
  - Suicidal ideation [Unknown]
  - Dizziness [Unknown]
  - Flatulence [Unknown]
  - Tremor [Unknown]
  - Parkinsonism [Unknown]
  - Brain fog [Unknown]
  - Condition aggravated [Unknown]
  - Impaired work ability [Unknown]
  - Blood pressure increased [Unknown]
  - Drug interaction [Unknown]
  - Somnolence [Unknown]
  - Product use issue [Unknown]
  - Product use in unapproved indication [Unknown]
  - Off label use [Unknown]
